FAERS Safety Report 10019057 (Version 1)
Quarter: 2014Q1

REPORT INFORMATION
  Report Type: Spontaneous
  Country: GB (occurrence: GB)
  Receive Date: 20140318
  Receipt Date: 20140318
  Transmission Date: 20141002
  Serious: Yes (Life-Threatening, Hospitalization, Disabling, Other)
  Sender: FDA-Public Use
  Company Number: GB-JNJFOC-20140306353

PATIENT
  Age: 59 Year
  Sex: Male

DRUGS (2)
  1. RISPERDAL CONSTA [Suspect]
     Indication: BIPOLAR DISORDER
     Route: 030
     Dates: end: 20140218
  2. PRIADEL [Suspect]
     Indication: BIPOLAR DISORDER
     Route: 065
     Dates: end: 20140218

REACTIONS (5)
  - Neuroleptic malignant syndrome [Not Recovered/Not Resolved]
  - Renal failure acute [Recovering/Resolving]
  - Toxicity to various agents [Unknown]
  - Pneumonia aspiration [Unknown]
  - Dehydration [Unknown]
